FAERS Safety Report 10034115 (Version 1)
Quarter: 2014Q1

REPORT INFORMATION
  Report Type: Spontaneous
  Country: US (occurrence: None)
  Receive Date: 20140321
  Receipt Date: 20140321
  Transmission Date: 20141002
  Serious: Yes (Death, Hospitalization)
  Sender: FDA-Public Use
  Company Number: US-2014-0932

PATIENT
  Age: 35 Year
  Sex: Female
  Weight: 77.16 kg

DRUGS (10)
  1. NAVELBINE [Suspect]
     Indication: PRODUCT USED FOR UNKNOWN INDICATION
  2. TYKERB [Suspect]
     Route: 048
     Dates: start: 20131015, end: 20140101
  3. XGEVA [Suspect]
     Indication: PRODUCT USED FOR UNKNOWN INDICATION
     Dates: start: 201309
  4. ABRAXANE [Suspect]
     Indication: BREAST CANCER METASTATIC
  5. HERCEPTIN [Suspect]
     Indication: BREAST CANCER
     Route: 042
     Dates: start: 20131105
  6. KADCYLA [Suspect]
     Indication: PRODUCT USED FOR UNKNOWN INDICATION
     Dates: start: 201309
  7. DOCUSTATE SODIUM [Concomitant]
  8. DEXAMETHASONE [Concomitant]
  9. NORCO [Concomitant]
  10. OMEPRAZOLE [Concomitant]

REACTIONS (13)
  - Breast cancer metastatic [None]
  - Ascites [None]
  - Metastases to central nervous system [None]
  - Disease recurrence [None]
  - Deafness unilateral [None]
  - Hydrocephalus [None]
  - Vertigo [None]
  - Nausea [None]
  - Dizziness [None]
  - Balance disorder [None]
  - Muscular weakness [None]
  - Hypoaesthesia [None]
  - Hepatic enzyme increased [None]
